FAERS Safety Report 9767349 (Version 2)
Quarter: 2014Q1

REPORT INFORMATION
  Report Type: Spontaneous
  Country: JP (occurrence: JP)
  Receive Date: 20131217
  Receipt Date: 20140114
  Transmission Date: 20141002
  Serious: Yes (Other)
  Sender: FDA-Public Use
  Company Number: JP-JNJFOC-20131206325

PATIENT
  Age: 73 Year
  Sex: Male

DRUGS (7)
  1. XARELTO [Suspect]
     Indication: PRODUCT USED FOR UNKNOWN INDICATION
     Route: 048
     Dates: start: 20131115, end: 20131121
  2. RHEUMATREX [Concomitant]
     Route: 048
  3. LANIRAPID [Concomitant]
     Route: 048
  4. LASIX [Concomitant]
     Route: 048
  5. MUCOSTA [Concomitant]
     Route: 048
  6. ALDACTONE A [Concomitant]
     Route: 048
  7. ACINON [Concomitant]
     Route: 048

REACTIONS (1)
  - Cerebral infarction [Recovered/Resolved with Sequelae]
